FAERS Safety Report 22627133 (Version 1)
Quarter: 2023Q2

REPORT INFORMATION
  Report Type: Spontaneous
  Country: CH (occurrence: CH)
  Receive Date: 20230622
  Receipt Date: 20230622
  Transmission Date: 20230721
  Serious: Yes (Hospitalization, Other)
  Sender: FDA-Public Use
  Company Number: None

PATIENT
  Age: 35 Year

DRUGS (13)
  1. VALACYCLOVIR [Suspect]
     Active Substance: VALACYCLOVIR HYDROCHLORIDE
     Indication: Antiviral prophylaxis
     Dosage: 500 MG, 2 TIMES PER DAY
     Route: 048
  2. TACROLIMUS [Suspect]
     Active Substance: TACROLIMUS
     Indication: Immunosuppressant drug therapy
     Dosage: UNK  UNK
  3. RUXOLITINIB [Suspect]
     Active Substance: RUXOLITINIB
     Indication: Immunosuppressant drug therapy
     Dosage: UNK  UNK
  4. MYCOPHENOLATE MOFETIL [Suspect]
     Active Substance: MYCOPHENOLATE MOFETIL
     Indication: Immunosuppressant drug therapy
     Dosage: UNK  UNK
  5. CYCLOSPORINE [Suspect]
     Active Substance: CYCLOSPORINE
     Indication: Immunosuppressant drug therapy
     Dosage: UNK  UNK
  6. IBRUTINIB [Suspect]
     Active Substance: IBRUTINIB
     Indication: Immunosuppressant drug therapy
     Dosage: UNK  UNK
  7. TOCILIZUMAB [Suspect]
     Active Substance: TOCILIZUMAB
     Indication: Immunosuppressant drug therapy
     Dosage: UNK  UNK
  8. PREDNISONE [Suspect]
     Active Substance: PREDNISONE
     Indication: Immunosuppressant drug therapy
     Dosage: 100 MG, ONCE PER DAY
  9. PREDNISONE [Suspect]
     Active Substance: PREDNISONE
     Dosage: 55 MG, ONCE PER DAY
  10. PREDNISONE [Suspect]
     Active Substance: PREDNISONE
     Dosage: 50 MG, ONCE PER DAY
  11. PREDNISONE [Suspect]
     Active Substance: PREDNISONE
     Dosage: 45 MG, ONCE PER DAY
  12. CIDOFOVIR [Concomitant]
     Active Substance: CIDOFOVIR
     Indication: Antiviral prophylaxis
     Dosage: 5 MG/KG, (2 WEEK)
     Route: 042
  13. ETANERCEPT [Suspect]
     Active Substance: ETANERCEPT
     Indication: Immunosuppressant drug therapy
     Dosage: UNK  UNK

REACTIONS (2)
  - Pathogen resistance [Unknown]
  - Oral herpes [Recovered/Resolved]
